FAERS Safety Report 12895422 (Version 1)
Quarter: 2016Q4

REPORT INFORMATION
  Report Type: Spontaneous
  Country: US (occurrence: US)
  Receive Date: 20161030
  Receipt Date: 20161030
  Transmission Date: 20170207
  Serious: No
  Sender: FDA-Public Use
  Company Number: US-ASTRAZENECA-2016SF09515

PATIENT
  Sex: Male

DRUGS (12)
  1. SYMBICORT [Suspect]
     Active Substance: BUDESONIDE\FORMOTEROL FUMARATE DIHYDRATE
     Indication: INCREASED BRONCHIAL SECRETION
     Dosage: 160, TWO PUFFS TWICE A DAY
     Route: 055
     Dates: start: 20161011
  2. SYMBICORT [Suspect]
     Active Substance: BUDESONIDE\FORMOTEROL FUMARATE DIHYDRATE
     Indication: WHEEZING
     Dosage: AS NEEDED
     Route: 055
  3. SYMBICORT [Suspect]
     Active Substance: BUDESONIDE\FORMOTEROL FUMARATE DIHYDRATE
     Indication: INCREASED BRONCHIAL SECRETION
     Dosage: 160, TWO PUFFS TWICE A DAY
     Route: 055
     Dates: start: 2015
  4. SYMBICORT [Suspect]
     Active Substance: BUDESONIDE\FORMOTEROL FUMARATE DIHYDRATE
     Indication: DYSPNOEA
     Dosage: AS NEEDED
     Route: 055
  5. SYMBICORT [Suspect]
     Active Substance: BUDESONIDE\FORMOTEROL FUMARATE DIHYDRATE
     Indication: COUGH
     Dosage: AS NEEDED
     Route: 055
  6. SYMBICORT [Suspect]
     Active Substance: BUDESONIDE\FORMOTEROL FUMARATE DIHYDRATE
     Indication: INCREASED BRONCHIAL SECRETION
     Dosage: AS NEEDED
     Route: 055
  7. SYMBICORT [Suspect]
     Active Substance: BUDESONIDE\FORMOTEROL FUMARATE DIHYDRATE
     Indication: COUGH
     Dosage: 160, TWO PUFFS TWICE A DAY
     Route: 055
     Dates: start: 20161011
  8. SYMBICORT [Suspect]
     Active Substance: BUDESONIDE\FORMOTEROL FUMARATE DIHYDRATE
     Indication: WHEEZING
     Dosage: 160, TWO PUFFS TWICE A DAY
     Route: 055
     Dates: start: 2015
  9. SYMBICORT [Suspect]
     Active Substance: BUDESONIDE\FORMOTEROL FUMARATE DIHYDRATE
     Indication: COUGH
     Dosage: 160, TWO PUFFS TWICE A DAY
     Route: 055
     Dates: start: 2015
  10. SYMBICORT [Suspect]
     Active Substance: BUDESONIDE\FORMOTEROL FUMARATE DIHYDRATE
     Indication: DYSPNOEA
     Dosage: 160, TWO PUFFS TWICE A DAY
     Route: 055
     Dates: start: 2015
  11. SYMBICORT [Suspect]
     Active Substance: BUDESONIDE\FORMOTEROL FUMARATE DIHYDRATE
     Indication: DYSPNOEA
     Dosage: 160, TWO PUFFS TWICE A DAY
     Route: 055
     Dates: start: 20161011
  12. SYMBICORT [Suspect]
     Active Substance: BUDESONIDE\FORMOTEROL FUMARATE DIHYDRATE
     Indication: WHEEZING
     Dosage: 160, TWO PUFFS TWICE A DAY
     Route: 055
     Dates: start: 20161011

REACTIONS (7)
  - Product quality issue [Unknown]
  - Wheezing [Unknown]
  - Drug dose omission [Unknown]
  - Increased bronchial secretion [Unknown]
  - Intentional product misuse [Unknown]
  - Dyspnoea [Unknown]
  - Cough [Unknown]
